FAERS Safety Report 6598841-8 (Version None)
Quarter: 2010Q1

REPORT INFORMATION
  Report Type: 
  Country: None (occurrence: None)
  Receive Date: 20100224
  Receipt Date: 20100217
  Transmission Date: 20100710
  Serious: Yes (Hospitalization)
  Sender: FDA-Public Use
  Company Number: JP-SANOFI-AVENTIS-2010SA009899

PATIENT
  Age: 81 Year
  Sex: Male
  Weight: 63 kg

DRUGS (8)
  1. PLAVIX [Suspect]
     Indication: TRANSIENT ISCHAEMIC ATTACK
     Route: 048
     Dates: start: 20071009
  2. ASPIRIN [Concomitant]
     Route: 048
     Dates: start: 20070626
  3. AMLODIPINE [Concomitant]
     Route: 048
     Dates: start: 20070925
  4. DIOVANE [Concomitant]
     Route: 048
     Dates: start: 20070719, end: 20071219
  5. DIOVANE [Concomitant]
     Route: 048
     Dates: start: 20071220
  6. EPADEL [Concomitant]
     Route: 048
     Dates: start: 20080326
  7. MAGLAX [Concomitant]
     Route: 048
     Dates: start: 20071220
  8. PARIET [Concomitant]
     Route: 048
     Dates: start: 20080604

REACTIONS (1)
  - BILIARY COLIC [None]
